FAERS Safety Report 15266457 (Version 1)
Quarter: 2018Q3

REPORT INFORMATION
  Report Type: Report from Study
  Country: US (occurrence: US)
  Receive Date: 20180810
  Receipt Date: 20180810
  Transmission Date: 20181010
  Serious: Yes (Other)
  Sender: FDA-Public Use
  Company Number: US-TESARO, INC-US-2018TSO03885

PATIENT
  Sex: Male

DRUGS (1)
  1. ZEJULA [Suspect]
     Active Substance: NIRAPARIB
     Indication: COLON CANCER
     Dosage: 300 MG, QD
     Route: 048
     Dates: start: 201805, end: 20180716

REACTIONS (4)
  - Product use in unapproved indication [Unknown]
  - Carbohydrate antigen 125 increased [Unknown]
  - Hepatic neoplasm [Unknown]
  - Drug ineffective [Unknown]
